FAERS Safety Report 4450322-3 (Version None)
Quarter: 2004Q3

REPORT INFORMATION
  Report Type: 
  Country: None (occurrence: None)
  Receive Date: 20040914
  Receipt Date: 20040826
  Transmission Date: 20050211
  Serious: Yes (Life-Threatening)
  Sender: FDA-Public Use
  Company Number: A01200404138

PATIENT
  Age: 47 Year
  Sex: Female

DRUGS (5)
  1. ELOXATIN [Suspect]
     Indication: COLORECTAL CANCER METASTATIC
     Dosage: 38 MG Q2W
     Route: 042
     Dates: start: 20040819, end: 20040819
  2. LEUCOVORIN CALCIUM [Concomitant]
  3. METOCLOPRAMIDE [Concomitant]
  4. DEXAMETHASONE [Concomitant]
  5. FLUOROURACIL [Concomitant]

REACTIONS (3)
  - DYSPNOEA [None]
  - LARYNGOSPASM [None]
  - STRIDOR [None]
